FAERS Safety Report 8156378-9 (Version None)
Quarter: 2012Q1

REPORT INFORMATION
  Report Type: 
  Country: None (occurrence: None)
  Receive Date: 20120222
  Receipt Date: 20120220
  Transmission Date: 20120608
  Serious: No
  Sender: FDA-Public Use
  Company Number: US-PFIZER INC-2012044670

PATIENT
  Sex: Female
  Weight: 65.76 kg

DRUGS (2)
  1. LYRICA [Suspect]
     Dosage: 75 MG, 2X/DAY
     Dates: end: 20120101
  2. LYRICA [Suspect]
     Indication: FIBROMYALGIA
     Dosage: 75 MG, DAILY
     Dates: start: 20120101, end: 20120101

REACTIONS (3)
  - OEDEMA PERIPHERAL [None]
  - NAUSEA [None]
  - WEIGHT INCREASED [None]
